FAERS Safety Report 7018458-0 (Version None)
Quarter: 2010Q3

REPORT INFORMATION
  Report Type: 
  Country: None (occurrence: None)
  Receive Date: 20100924
  Receipt Date: 20090721
  Transmission Date: 20110219
  Serious: Yes (Disabling)
  Sender: FDA-Public Use
  Company Number: APP201000542

PATIENT
  Age: 42 Year
  Sex: Male
  Weight: 88.4514 kg

DRUGS (4)
  1. SENSORCAINE [Suspect]
     Indication: PROCEDURAL PAIN
     Dosage: 275 ML, CONTINUOUS VIA PUMP, INTRA-ARTICULAR
     Route: 014
     Dates: start: 20070319
  2. XYLOCAINE W/ EPINEPHRENE [Suspect]
     Indication: PREMEDICATION
     Dosage: 30 ML, LOCAL INFILTRATION, 10 ML, LOCAL INFILTARTION
     Dates: start: 20070319
  3. DONJOY PAIN PUMP [Suspect]
     Indication: PROCEDURAL PAIN
     Dates: start: 20070319
  4. ANCEF [Concomitant]

REACTIONS (3)
  - CHONDROLYSIS [None]
  - MUSCULOSKELETAL PAIN [None]
  - POST PROCEDURAL COMPLICATION [None]
